FAERS Safety Report 19941302 (Version 1)
Quarter: 2021Q4

REPORT INFORMATION
  Report Type: Spontaneous
  Country: US (occurrence: US)
  Receive Date: 20211011
  Receipt Date: 20211011
  Transmission Date: 20220304
  Serious: No
  Sender: FDA-Public Use
  Company Number: US-JAZZ-2021-US-008296

PATIENT
  Age: 45 Year
  Sex: Male

DRUGS (2)
  1. SUNOSI [Suspect]
     Active Substance: SOLRIAMFETOL
     Indication: Somnolence
     Dosage: 150 MILLIGRAM ORALLY DAILY
     Route: 048
  2. SUNOSI [Suspect]
     Active Substance: SOLRIAMFETOL
     Indication: Narcolepsy

REACTIONS (1)
  - Drug ineffective [Unknown]
